FAERS Safety Report 13576487 (Version 2)
Quarter: 2017Q2

REPORT INFORMATION
  Report Type: Report from Study
  Country: DE (occurrence: DE)
  Receive Date: 20170524
  Receipt Date: 20170613
  Transmission Date: 20170830
  Serious: Yes (Life-Threatening, Hospitalization, Other)
  Sender: FDA-Public Use
  Company Number: DE-BRISTOL-MYERS SQUIBB COMPANY-BMS-2017-010771

PATIENT
  Age: 77 Year
  Sex: Male

DRUGS (1)
  1. APIXABAN [Suspect]
     Active Substance: APIXABAN
     Indication: THROMBOSIS PROPHYLAXIS
     Dosage: 5 MG, BID
     Route: 065
     Dates: end: 20170202

REACTIONS (4)
  - Haemorrhage intracranial [Recovered/Resolved]
  - Subdural haematoma evacuation [Unknown]
  - Prescribed underdose [Unknown]
  - Spinal cord haemorrhage [Recovered/Resolved]

NARRATIVE: CASE EVENT DATE: 20170202
